FAERS Safety Report 17050878 (Version 10)
Quarter: 2020Q1

REPORT INFORMATION
  Report Type: Report from Study
  Country: None (occurrence: BE)
  Receive Date: 20191120
  Receipt Date: 20200128
  Transmission Date: 20200409
  Serious: Yes (Hospitalization)
  Sender: FDA-Public Use
  Company Number: BE-ABBVIE-19K-013-3000616-00

PATIENT
  Sex: Male
  Weight: 70 kg

DRUGS (20)
  1. DUODOPA [Suspect]
     Active Substance: CARBIDOPA\LEVODOPA
     Dosage: MD=6ML, CD=3.9ML/HR DURING 16HRS, ED=1.5ML
     Route: 050
     Dates: start: 20191209, end: 20191216
  2. DUODOPA [Suspect]
     Active Substance: CARBIDOPA\LEVODOPA
     Dosage: MD=4.9ML, CD=4ML/HR DURING 16HRS, ED=2ML
     Route: 050
     Dates: start: 20200102
  3. DUODOPA [Suspect]
     Active Substance: CARBIDOPA\LEVODOPA
     Dosage: MD=4.5ML, CD=3.6ML/HR DURING 16HRS, ED=1ML
     Route: 050
     Dates: start: 20191113, end: 20191114
  4. DUODOPA [Suspect]
     Active Substance: CARBIDOPA\LEVODOPA
     Dosage: MD=4.8ML, CD=3.6ML/HR DURING 16HRS, ED=1ML
     Route: 050
     Dates: start: 20191115, end: 20191118
  5. DUODOPA [Suspect]
     Active Substance: CARBIDOPA\LEVODOPA
     Dosage: MD=5.5ML, CD=3.6ML/HR DURING 16HRS, ED=1ML
     Route: 050
     Dates: start: 20191126, end: 20191209
  6. LOSFERRON [Concomitant]
     Indication: PRODUCT USED FOR UNKNOWN INDICATION
  7. DUODOPA [Suspect]
     Active Substance: CARBIDOPA\LEVODOPA
     Dosage: MD=5.5ML, CD=3.6ML/HR DURING 16HRS, ED=1ML
     Route: 050
     Dates: start: 20191112, end: 201911
  8. DUODOPA [Suspect]
     Active Substance: CARBIDOPA\LEVODOPA
     Route: 050
     Dates: start: 20191218, end: 20191231
  9. ZOLPIDEM [Concomitant]
     Active Substance: ZOLPIDEM TARTRATE
     Indication: PRODUCT USED FOR UNKNOWN INDICATION
  10. PROLOPA 250 [Concomitant]
     Dosage: FORM STRENGTH: 200MG/50MG; RESCUE MEDICATION
  11. PROLOPA HBS 125 [Concomitant]
     Dosage: FORM STRENGTH: 100MG/25MG; UNIT DOSE: 2 CAPSULES; RESCUE MEDICATION
     Dates: start: 201911
  12. DUODOPA [Suspect]
     Active Substance: CARBIDOPA\LEVODOPA
     Dosage: MD=4.8ML, CD=3.6ML/HR DURING 16HRS, ED=1.5ML
     Route: 050
     Dates: start: 20191118, end: 20191126
  13. PROLOPA HBS 125 [Concomitant]
     Indication: PARKINSON^S DISEASE
     Dosage: FORM STRENGTH: 100MG/25MG; UNIT DOSE: 2 CAPSULES
     Route: 048
  14. DUODOPA [Suspect]
     Active Substance: CARBIDOPA\LEVODOPA
     Dosage: MD=5ML, CD=4ML/HR DURING 16HRS, ED=2ML
     Route: 050
     Dates: start: 20191231, end: 20200102
  15. PROLOPA 125 DISP [Suspect]
     Active Substance: BENSERAZIDE HYDROCHLORIDE\LEVODOPA
     Indication: PARKINSON^S DISEASE
     Dosage: 100MG/25MG, HALF
     Route: 048
  16. DUODOPA [Suspect]
     Active Substance: CARBIDOPA\LEVODOPA
     Dosage: DOSES CONTINUOUSLY MONITORED AND ADAPTED
     Route: 050
     Dates: start: 20191106, end: 20191112
  17. PROLOPA 250 [Concomitant]
     Indication: PARKINSON^S DISEASE
     Dosage: FORM STRENGTH: 200MG/50MG; UNIT DOSE: 1 TABLET
     Route: 048
  18. DUODOPA [Suspect]
     Active Substance: CARBIDOPA\LEVODOPA
     Indication: PARKINSON^S DISEASE
     Dosage: MD=6.5ML, CD=3.4ML/HR DURING 16HRS, ED=1ML
     Route: 050
     Dates: start: 20191105, end: 20191106
  19. DUODOPA [Suspect]
     Active Substance: CARBIDOPA\LEVODOPA
     Dosage: MD=5ML, CD=3.6ML/HR DURING 16HRS, ED=1ML
     Route: 050
     Dates: start: 20191114, end: 20191115
  20. DUODOPA [Suspect]
     Active Substance: CARBIDOPA\LEVODOPA
     Dosage: MD=6ML, CD=4.2ML/HR DURING 16HRS, ED=1.5ML
     Route: 050
     Dates: start: 20191216, end: 201912

REACTIONS (9)
  - Underdose [Unknown]
  - On and off phenomenon [Not Recovered/Not Resolved]
  - Therapeutic product effect incomplete [Unknown]
  - Panic reaction [Unknown]
  - Headache [Unknown]
  - Freezing phenomenon [Recovered/Resolved]
  - Memory impairment [Unknown]
  - Dyskinesia [Not Recovered/Not Resolved]
  - Drug ineffective [Recovered/Resolved]

NARRATIVE: CASE EVENT DATE: 201911
